FAERS Safety Report 23339570 (Version 1)
Quarter: 2023Q4

REPORT INFORMATION
  Report Type: Other
  Country: None (occurrence: CN)
  Receive Date: 20231226
  Receipt Date: 20231226
  Transmission Date: 20240109
  Serious: Yes (Other)
  Sender: FDA-Public Use
  Company Number: CN-B.Braun Medical Inc.-2149740

PATIENT
  Age: 73 Year
  Sex: Male

DRUGS (4)
  1. CEFTAZIDIME AND DEXTROSE [Suspect]
     Active Substance: CEFTAZIDIME
     Indication: Ear pain
  2. CEFOPERAZONE\SULBACTAM [Suspect]
     Active Substance: CEFOPERAZONE\SULBACTAM
  3. LEVOFLOXACIN [Suspect]
     Active Substance: LEVOFLOXACIN
  4. Sodium bicarbonate solution [Concomitant]

REACTIONS (2)
  - Drug ineffective [None]
  - Facial paralysis [None]
